FAERS Safety Report 9491144 (Version 1)
Quarter: 2013Q3

REPORT INFORMATION
  Report Type: Report from Study
  Country: JP (occurrence: JP)
  Receive Date: 20130830
  Receipt Date: 20130830
  Transmission Date: 20140515
  Serious: Yes (Hospitalization, Other)
  Sender: FDA-Public Use
  Company Number: JP-ASTELLAS-2013US009210

PATIENT
  Age: 64 Year
  Sex: Female

DRUGS (21)
  1. ERLOTINIB TABLET [Suspect]
     Indication: ADENOCARCINOMA PANCREAS
     Dosage: 100 MG, UID/QD
     Route: 048
     Dates: start: 20120830, end: 20120906
  2. ERLOTINIB TABLET [Suspect]
     Dosage: 50 MG, UID/QD
     Route: 048
     Dates: start: 20120920, end: 20121025
  3. ERLOTINIB TABLET [Suspect]
     Dosage: 50 MG, UID/QD
     Route: 048
     Dates: start: 20121115, end: 20130321
  4. GEMCITABINE HYDROCHLORIDE [Suspect]
     Indication: ADENOCARCINOMA PANCREAS
     Dosage: 800 MG/M2, UID/QD
     Route: 041
     Dates: start: 20120830, end: 20120830
  5. GEMCITABINE HYDROCHLORIDE [Suspect]
     Dosage: 800 MG/M2, UID/QD
     Route: 041
     Dates: start: 20120927, end: 20120927
  6. GEMCITABINE HYDROCHLORIDE [Suspect]
     Dosage: 800 MG/M2, UID/QD
     Route: 041
     Dates: start: 20121011, end: 20121011
  7. GEMCITABINE HYDROCHLORIDE [Suspect]
     Dosage: 800 MG/M2, UID/QD
     Route: 041
     Dates: start: 20121025, end: 20121025
  8. GEMCITABINE HYDROCHLORIDE [Suspect]
     Dosage: 1000 MG/M2, UID/QD
     Route: 041
     Dates: start: 20121115, end: 20121115
  9. GEMCITABINE HYDROCHLORIDE [Suspect]
     Dosage: 1000 MG/M2, UID/QD
     Route: 041
     Dates: start: 20121129, end: 20121129
  10. GEMCITABINE HYDROCHLORIDE [Suspect]
     Dosage: 1000 MG/M2, UID/QD
     Route: 041
     Dates: start: 20121213, end: 20121213
  11. GEMCITABINE HYDROCHLORIDE [Suspect]
     Dosage: 1000 MG/M2, UID/QD
     Route: 041
     Dates: start: 20121227, end: 20121227
  12. GEMCITABINE HYDROCHLORIDE [Suspect]
     Dosage: 1000 MG/M2, UID/QD
     Route: 041
     Dates: start: 20130110, end: 20130110
  13. GEMCITABINE HYDROCHLORIDE [Suspect]
     Dosage: 1000 MG/M2, UID/QD
     Route: 041
     Dates: start: 20130124, end: 20130124
  14. GEMCITABINE HYDROCHLORIDE [Suspect]
     Dosage: 1000 MG/M2, UID/QD
     Route: 041
     Dates: start: 20130207, end: 20130207
  15. GEMCITABINE HYDROCHLORIDE [Suspect]
     Dosage: 1000 MG/M2, UID/QD
     Route: 041
     Dates: start: 20130221, end: 20130221
  16. GEMCITABINE HYDROCHLORIDE [Suspect]
     Dosage: 1000 MG/M2, UID/QD
     Route: 041
     Dates: start: 20130307, end: 20130307
  17. GEMCITABINE HYDROCHLORIDE [Suspect]
     Dosage: 1000 MG/M2, UID/QD
     Route: 041
     Dates: start: 20130321, end: 20130321
  18. PYDOXAL [Concomitant]
     Indication: PRODUCT USED FOR UNKNOWN INDICATION
     Dosage: 60 MG, UID/QD
     Route: 048
     Dates: start: 20120830
  19. HIBON [Concomitant]
     Indication: PRODUCT USED FOR UNKNOWN INDICATION
     Dosage: 20 MG, UID/QD
     Route: 048
     Dates: start: 20120830
  20. LYRICA [Concomitant]
     Indication: PRODUCT USED FOR UNKNOWN INDICATION
     Dosage: 25 MG, UID/QD
     Route: 048
     Dates: start: 20130110
  21. HYPEN                              /00613801/ [Concomitant]
     Indication: PRODUCT USED FOR UNKNOWN INDICATION
     Dosage: 400 MG, UID/QD
     Route: 048
     Dates: start: 20130110

REACTIONS (4)
  - Platelet count decreased [Recovered/Resolved]
  - Rash [Recovered/Resolved]
  - Nausea [Recovered/Resolved]
  - Malignant neoplasm progression [Unknown]
